FAERS Safety Report 13134673 (Version 1)
Quarter: 2017Q1

REPORT INFORMATION
  Report Type: Spontaneous
  Country: US (occurrence: US)
  Receive Date: 20170120
  Receipt Date: 20170120
  Transmission Date: 20170428
  Serious: No
  Sender: FDA-Public Use
  Company Number: US-CELGENEUS-USA-2017013268

PATIENT
  Sex: Female

DRUGS (1)
  1. OTEZLA [Suspect]
     Active Substance: APREMILAST
     Indication: PSORIASIS
     Dosage: 60 MILLIGRAM
     Route: 048
     Dates: start: 201610

REACTIONS (12)
  - Cough [Unknown]
  - Infection [Unknown]
  - Muscle spasms [Unknown]
  - Nausea [Unknown]
  - Aphonia [Unknown]
  - Respiratory tract congestion [Unknown]
  - Respiratory symptom [Unknown]
  - Back pain [Unknown]
  - Headache [Unknown]
  - Weight decreased [Unknown]
  - Blood pressure increased [Unknown]
  - Unevaluable event [Unknown]
